FAERS Safety Report 6777832-8 (Version None)
Quarter: 2010Q2

REPORT INFORMATION
  Report Type: 
  Country: None (occurrence: None)
  Receive Date: 20100618
  Receipt Date: 20100603
  Transmission Date: 20101027
  Serious: Yes (Hospitalization)
  Sender: FDA-Public Use
  Company Number: JP-MYLANLABS-2010S1009799

PATIENT
  Age: 18 Year
  Sex: Female
  Weight: 50 kg

DRUGS (7)
  1. PROPOFOL [Suspect]
     Indication: GENERAL ANAESTHESIA
     Route: 065
  2. FENTANYL [Suspect]
     Indication: GENERAL ANAESTHESIA
     Route: 065
  3. DROPERIDOL [Suspect]
     Indication: PAIN
     Dosage: 1ML: IN 50ML SOLUTION, INFUSED AT 1 ML/HOUR
     Route: 058
  4. HALOPERIDOL [Suspect]
     Indication: ANXIETY
     Route: 040
  5. ROPIVACAINE HYDROCHLORIDE [Concomitant]
     Indication: PAIN
     Dosage: 10ML; IN 50ML SOLUTION, INFUSED AT 1 ML/HOUR
     Route: 058
  6. MORPHINE [Concomitant]
     Indication: PAIN
     Dosage: 1ML; IN 50ML SOLUTION, INFUSED AT 1 ML/HOUR
     Route: 058
  7. SODIUM CHLORIDE [Concomitant]
     Dosage: IN 50ML SOLUTION, INFUSED AT 1 ML/HOUR
     Route: 058

REACTIONS (2)
  - CATATONIA [None]
  - NEUROLEPTIC MALIGNANT SYNDROME [None]
